FAERS Safety Report 5418898-7 (Version None)
Quarter: 2007Q3

REPORT INFORMATION
  Report Type: 
  Country: None (occurrence: None)
  Receive Date: 20070718
  Receipt Date: 20060721
  Transmission Date: 20080115
  Serious: Yes (Hospitalization)
  Sender: FDA-Public Use
  Company Number: 2006091888

PATIENT
  Age: 64 Year
  Sex: Female
  Weight: 78.0187 kg

DRUGS (5)
  1. CELEBREX [Suspect]
     Indication: OSTEOARTHRITIS
     Dosage: 200 MG (200 MG, 1 IN 1 D)
     Dates: start: 20020101
  2. ADVIL [Concomitant]
  3. ALEVE [Concomitant]
  4. DARVOCET [Concomitant]
  5. VIOXX [Concomitant]

REACTIONS (1)
  - GASTRIC HAEMORRHAGE [None]
